FAERS Safety Report 9290654 (Version 1)
Quarter: 2013Q2

REPORT INFORMATION
  Report Type: Spontaneous
  Country: TR (occurrence: TR)
  Receive Date: 20130515
  Receipt Date: 20130515
  Transmission Date: 20140414
  Serious: Yes (Hospitalization, Other)
  Sender: FDA-Public Use
  Company Number: TR-PFIZER INC-2013145331

PATIENT
  Age: 64 Year
  Sex: Female

DRUGS (1)
  1. METRONIDAZOLE [Suspect]
     Indication: COLITIS ULCERATIVE
     Dosage: 1.500 MG, DAILY, CUMULATIVE METRONIDAZOLE DOSE 450 G

REACTIONS (5)
  - Toxicity to various agents [Unknown]
  - Necrosis [Unknown]
  - Cytotoxic oedema [Unknown]
  - Ataxia [Unknown]
  - Dysarthria [Unknown]
